FAERS Safety Report 23808495 (Version 1)
Quarter: 2024Q2

REPORT INFORMATION
  Report Type: Other
  Country: US (occurrence: None)
  Receive Date: 20240502
  Receipt Date: 20240502
  Transmission Date: 20240716
  Serious: Yes (Death)
  Sender: FDA-Public Use
  Company Number: US-ROCHE-3552273

PATIENT
  Age: 68 Year
  Sex: Female

DRUGS (5)
  1. OCREVUS [Suspect]
     Active Substance: OCRELIZUMAB
     Indication: Primary progressive multiple sclerosis
     Dosage: DATE OF TREATMENT: 23/DEC/2022
     Route: 042
     Dates: start: 20200708
  2. LAMOTRIGINE [Concomitant]
     Active Substance: LAMOTRIGINE
  3. DUONEB [Concomitant]
     Active Substance: ALBUTEROL SULFATE\IPRATROPIUM BROMIDE
  4. FOLIC ACID [Concomitant]
     Active Substance: FOLIC ACID
  5. THIAMINE [Concomitant]
     Active Substance: THIAMINE

REACTIONS (1)
  - Urinary tract infection [Fatal]
